FAERS Safety Report 4956401-6 (Version None)
Quarter: 2006Q1

REPORT INFORMATION
  Report Type: 
  Country: None (occurrence: None)
  Receive Date: 20060329
  Receipt Date: 20051021
  Transmission Date: 20060701
  Serious: Yes (Hospitalization)
  Sender: FDA-Public Use
  Company Number: JP-GILEAD-2005-0008844

PATIENT
  Sex: Male

DRUGS (11)
  1. HEPSERA [Suspect]
     Indication: HEPATITIS B
     Route: 048
     Dates: start: 20031113
  2. ZEFFIX [Suspect]
     Indication: HEPATITIS B
     Route: 048
     Dates: start: 20011023
  3. ZEFFIX [Suspect]
     Indication: HEPATIC CIRRHOSIS
  4. WARFARIN SODIUM [Concomitant]
  5. ANPLAG [Concomitant]
  6. SELBEX [Concomitant]
  7. DIART [Concomitant]
  8. DIGOSIN [Concomitant]
  9. GASTER D [Concomitant]
  10. ALDACTONE [Concomitant]
  11. SLOW-K [Concomitant]

REACTIONS (3)
  - GASTRIC VARICES [None]
  - HEPATIC NEOPLASM MALIGNANT [None]
  - SPLENOMEGALY [None]
